FAERS Safety Report 14271449 (Version 1)
Quarter: 2017Q4

REPORT INFORMATION
  Report Type: Spontaneous
  Country: US (occurrence: US)
  Receive Date: 20171211
  Receipt Date: 20171211
  Transmission Date: 20180321
  Serious: Yes (Death)
  Sender: FDA-Public Use
  Company Number: US-PERRIGO-17US031041

PATIENT
  Age: 19 Year
  Sex: Male

DRUGS (12)
  1. BENZTROPINE [Suspect]
     Active Substance: BENZTROPINE
     Indication: COMPLETED SUICIDE
     Dosage: UNK
     Route: 048
  2. SERTRALINE [Suspect]
     Active Substance: SERTRALINE HYDROCHLORIDE
     Indication: COMPLETED SUICIDE
     Dosage: UNK
     Route: 048
  3. OXYCODONE [Suspect]
     Active Substance: OXYCODONE
     Indication: COMPLETED SUICIDE
     Dosage: UNK
     Route: 048
  4. HYDROCHLOROTHIAZIDE. [Suspect]
     Active Substance: HYDROCHLOROTHIAZIDE
     Indication: COMPLETED SUICIDE
     Dosage: UNK
     Route: 048
  5. FLUPHENAZINE [Suspect]
     Active Substance: FLUPHENAZINE
     Indication: COMPLETED SUICIDE
     Dosage: UNK
     Route: 048
  6. LORAZEPAM. [Suspect]
     Active Substance: LORAZEPAM
     Indication: COMPLETED SUICIDE
     Dosage: UNK
     Route: 048
  7. OXCARBAZEPINE. [Suspect]
     Active Substance: OXCARBAZEPINE
     Indication: COMPLETED SUICIDE
     Dosage: UNK
     Route: 048
  8. OMEPRAZOLE. [Suspect]
     Active Substance: OMEPRAZOLE
     Indication: COMPLETED SUICIDE
     Dosage: UNK
     Route: 048
  9. VALPROIC ACID. [Suspect]
     Active Substance: VALPROIC ACID
     Indication: COMPLETED SUICIDE
     Dosage: UNK
     Route: 048
  10. QUETIAPINE. [Suspect]
     Active Substance: QUETIAPINE
     Indication: COMPLETED SUICIDE
     Dosage: UNK
     Route: 048
  11. LEVETIRACETAM. [Suspect]
     Active Substance: LEVETIRACETAM
     Indication: COMPLETED SUICIDE
     Dosage: UNK
     Route: 048
  12. LISINOPRIL. [Suspect]
     Active Substance: LISINOPRIL
     Indication: COMPLETED SUICIDE
     Dosage: UNK
     Route: 048

REACTIONS (1)
  - Death [Fatal]
